FAERS Safety Report 6362262-3 (Version None)
Quarter: 2009Q3

REPORT INFORMATION
  Report Type: 
  Country: None (occurrence: None)
  Receive Date: 20090918
  Receipt Date: 20090731
  Transmission Date: 20100115
  Serious: Yes (Other)
  Sender: FDA-Public Use
  Company Number: US-ABBOTT-09P-163-0588901-00

PATIENT
  Sex: Female
  Weight: 45.4 kg

DRUGS (6)
  1. HUMIRA [Suspect]
     Indication: RHEUMATOID ARTHRITIS
     Route: 058
     Dates: start: 20021001
  2. ATENOLOL [Concomitant]
     Indication: CARDIAC DISORDER
     Route: 048
  3. ATENOLOL [Concomitant]
     Indication: ATRIAL FIBRILLATION
  4. DIGOXIN [Concomitant]
     Indication: CARDIAC DISORDER
     Route: 048
  5. PREDNISONE [Concomitant]
     Indication: DRUG USE FOR UNKNOWN INDICATION
  6. PROCRIT [Concomitant]
     Indication: DRUG USE FOR UNKNOWN INDICATION
     Route: 058

REACTIONS (3)
  - ATRIAL FIBRILLATION [None]
  - BREAST CANCER [None]
  - OEDEMA PERIPHERAL [None]
